FAERS Safety Report 10614245 (Version 5)
Quarter: 2015Q2

REPORT INFORMATION
  Report Type: Spontaneous
  Country: DE (occurrence: DE)
  Receive Date: 20141128
  Receipt Date: 20150513
  Transmission Date: 20150821
  Serious: Yes (Hospitalization, Other)
  Sender: FDA-Public Use
  Company Number: DE-TAKEDA-2014TUS007107

PATIENT
  Age: 28 Year
  Sex: Female
  Weight: 60 kg

DRUGS (8)
  1. OXYGEC 10 [Concomitant]
     Indication: CROHN^S DISEASE
     Dosage: UNK, AS NEEDED
     Dates: start: 20140227
  2. ENTYVIO [Suspect]
     Active Substance: VEDOLIZUMAB
     Indication: CROHN^S DISEASE
     Dosage: 300 MG, UNK
     Route: 042
     Dates: start: 20140721
  3. SALOFALK [Concomitant]
     Active Substance: MESALAMINE
     Indication: CROHN^S DISEASE
     Dosage: 1 G, UNK
     Route: 054
     Dates: start: 20140428
  4. DEKRISTOL 20000 [Concomitant]
     Indication: CROHN^S DISEASE
     Dosage: UNK, 1/WEEK
     Dates: start: 20140414
  5. VOMEX [Concomitant]
     Active Substance: DIMENHYDRINATE
     Indication: CROHN^S DISEASE
     Dosage: UNK, AS NEEDED
     Route: 054
     Dates: start: 20140414
  6. ANTIBIOTICS [Concomitant]
     Active Substance: UNSPECIFIED INGREDIENT
     Dosage: UNK
  7. GLUCOCORTICOIDS [Concomitant]
     Active Substance: UNSPECIFIED INGREDIENT
     Dosage: UNK
  8. DECORTIN H 20 [Concomitant]
     Indication: CROHN^S DISEASE
     Dosage: 5 MG, QD
     Dates: start: 20140414

REACTIONS (5)
  - Induced labour [Unknown]
  - Foetal growth restriction [Unknown]
  - Exposure during pregnancy [Unknown]
  - Placental insufficiency [Unknown]
  - Amniotic fluid volume decreased [Unknown]

NARRATIVE: CASE EVENT DATE: 2014
